FAERS Safety Report 9351437 (Version 1)
Quarter: 2013Q2

REPORT INFORMATION
  Report Type: Spontaneous
  Country: US (occurrence: US)
  Receive Date: 20130617
  Receipt Date: 20130617
  Transmission Date: 20140414
  Serious: No
  Sender: FDA-Public Use
  Company Number: US-UPSHER-SMITH LABORATORIES, INC.-13001835

PATIENT
  Age: 87 Year
  Sex: Male

DRUGS (2)
  1. FORTICAL [Suspect]
     Indication: BONE DENSITY DECREASED
     Dosage: 200 IU, QD
     Route: 045
     Dates: start: 201304
  2. UNSPECIFIED HIGH BLOOD PRESSURE PILL [Concomitant]
     Dosage: UNK

REACTIONS (1)
  - Sneezing [Recovered/Resolved]
